FAERS Safety Report 10198867 (Version 1)
Quarter: 2014Q2

REPORT INFORMATION
  Report Type: Spontaneous
  Country: DE (occurrence: DE)
  Receive Date: 20140527
  Receipt Date: 20140527
  Transmission Date: 20141212
  Serious: Yes (Death, Congenital Anomaly, Other)
  Sender: FDA-Public Use
  Company Number: DE-TEVA-482581GER

PATIENT
  Sex: Male

DRUGS (4)
  1. PREDNISOLON [Suspect]
     Route: 064
  2. DIOVAN [Suspect]
     Route: 064
  3. HUMIRA [Suspect]
     Route: 064
  4. FOLIO FORTE [Concomitant]
     Route: 064

REACTIONS (7)
  - Foetal cystic hygroma [Fatal]
  - Single umbilical artery [Not Recovered/Not Resolved]
  - Exomphalos [Not Recovered/Not Resolved]
  - Hydronephrosis [Not Recovered/Not Resolved]
  - Maternal drugs affecting foetus [None]
  - Congenital hydronephrosis [None]
  - Abortion missed [None]
